FAERS Safety Report 15192253 (Version 2)
Quarter: 2021Q1

REPORT INFORMATION
  Report Type: Spontaneous
  Country: FR (occurrence: FR)
  Receive Date: 20180724
  Receipt Date: 20210122
  Transmission Date: 20210419
  Serious: Yes (Other)
  Sender: FDA-Public Use
  Company Number: FR-SHIRE-FR201827032

PATIENT
  Age: 55 Year
  Sex: Male

DRUGS (6)
  1. 476 (MESALAZINE/MESALAMINE) [Suspect]
     Active Substance: MESALAMINE
     Indication: KAPOSI^S SARCOMA
  2. BENDAMUSTINE [Suspect]
     Active Substance: BENDAMUSTINE
     Indication: LYMPHADENOPATHY
     Dosage: 90 MG/M2MG (MILLIGRAM PER SQUARE METRE), SIX MONTHLY
     Route: 065
     Dates: start: 201506
  3. RITUXIMAB. [Suspect]
     Active Substance: RITUXIMAB
     Indication: LYMPHADENOPATHY
     Dosage: 375 MILLIGRAM/SQ. METER (1 INJECTION EVERY 2 MONTHS)
     Route: 058
     Dates: start: 201512, end: 201610
  4. BENDAMUSTINE [Suspect]
     Active Substance: BENDAMUSTINE
     Indication: B-CELL LYMPHOMA
  5. 476 (MESALAZINE/MESALAMINE) [Suspect]
     Active Substance: MESALAMINE
     Indication: COLITIS ULCERATIVE
     Dosage: 2 G, 1X/DAY:QD
     Route: 065
     Dates: start: 201609
  6. RITUXIMAB. [Suspect]
     Active Substance: RITUXIMAB
     Indication: B-CELL LYMPHOMA

REACTIONS (6)
  - Kaposi^s sarcoma [Recovered/Resolved]
  - Product prescribing error [Unknown]
  - Rectal ulcer [Recovered/Resolved]
  - Incorrect dose administered [Unknown]
  - Lung disorder [Unknown]
  - Colitis [Recovered/Resolved]

NARRATIVE: CASE EVENT DATE: 201610
